FAERS Safety Report 19655954 (Version 1)
Quarter: 2021Q3

REPORT INFORMATION
  Report Type: Spontaneous
  Country: DK (occurrence: DK)
  Receive Date: 20210804
  Receipt Date: 20210804
  Transmission Date: 20211014
  Serious: Yes (Life-Threatening, Other)
  Sender: FDA-Public Use
  Company Number: DK-MYLANLABS-2021M1046942

PATIENT
  Age: 22 Year
  Sex: Female

DRUGS (4)
  1. VEPICOMBIN                         /00001802/ [Concomitant]
     Indication: PRODUCT USED FOR UNKNOWN INDICATION
     Dosage: UNK
  2. PARACETAMOL [Suspect]
     Active Substance: ACETAMINOPHEN
     Indication: ANALGESIC THERAPY
     Dosage: UNK
  3. BALANCID NOVUM [Concomitant]
     Indication: GASTROOESOPHAGEAL REFLUX DISEASE
     Dosage: UNK
  4. MOVICOL [Concomitant]
     Active Substance: POLYETHYLENE GLYCOL 3350\POTASSIUM CHLORIDE\SODIUM BICARBONATE\SODIUM CHLORIDE
     Indication: CONSTIPATION
     Dosage: UNK

REACTIONS (7)
  - Dizziness [Unknown]
  - Angioedema [Unknown]
  - Paraesthesia [Unknown]
  - Anaphylactic reaction [Unknown]
  - Abdominal pain [Unknown]
  - Allergic reaction to excipient [Unknown]
  - Type I hypersensitivity [Unknown]
